FAERS Safety Report 14554876 (Version 3)
Quarter: 2019Q3

REPORT INFORMATION
  Report Type: Spontaneous
  Country: AT (occurrence: AT)
  Receive Date: 20180220
  Receipt Date: 20190904
  Transmission Date: 20191004
  Serious: Yes (Hospitalization, Other)
  Sender: FDA-Public Use
  Company Number: AT-GILEAD-2018-0321837

PATIENT
  Age: 44 Year
  Sex: Male

DRUGS (3)
  1. CLINDAMYCIN. [Concomitant]
     Active Substance: CLINDAMYCIN
     Indication: TOOTH DISORDER
     Dosage: 300 MG, UNK
  2. KETOPROFEN. [Interacting]
     Active Substance: KETOPROFEN
     Indication: TOOTH DISORDER
     Dosage: UNK
     Route: 065
     Dates: start: 201710
  3. VIREAD [Suspect]
     Active Substance: TENOFOVIR DISOPROXIL FUMARATE
     Indication: CHRONIC HEPATITIS B
     Dosage: 245 MG, UNK
     Route: 065
     Dates: start: 2012, end: 2017

REACTIONS (3)
  - Acute kidney injury [Not Recovered/Not Resolved]
  - Dialysis [Not Recovered/Not Resolved]
  - Drug interaction [Recovered/Resolved]

NARRATIVE: CASE EVENT DATE: 20171101
